FAERS Safety Report 21846007 (Version 1)
Quarter: 2023Q1

REPORT INFORMATION
  Report Type: Report from Study
  Country: US (occurrence: None)
  Receive Date: 20230111
  Receipt Date: 20230111
  Transmission Date: 20230418
  Serious: Yes (Other)
  Sender: FDA-Public Use
  Company Number: US-ROCHE-3259611

PATIENT
  Age: 72 Year
  Sex: Female
  Weight: 58.1 kg

DRUGS (4)
  1. ATEZOLIZUMAB [Suspect]
     Active Substance: ATEZOLIZUMAB
     Indication: Non-small cell lung cancer
     Dosage: MOST RECENT DOSE WAS ADMINISTERED ON 03/JAN/2023
     Route: 065
     Dates: start: 20221122
  2. BEVACIZUMAB [Suspect]
     Active Substance: BEVACIZUMAB
     Indication: Non-small cell lung cancer
     Dosage: MOST RECENT DOSE WAS ADMINISTERED ON 03/JAN/2023
     Route: 065
     Dates: start: 20221122
  3. CARBOPLATIN [Suspect]
     Active Substance: CARBOPLATIN
     Indication: Non-small cell lung cancer
     Dosage: MOST RECENT DOSE WAS ADMINISTERED ON 03/JAN/2023
     Route: 065
     Dates: start: 20221122
  4. PEMETREXED [Suspect]
     Active Substance: PEMETREXED
     Indication: Non-small cell lung cancer
     Dosage: MOST RECENT DOSE WAS ADMINISTERED ON 03/JAN/2023
     Route: 065
     Dates: start: 20221122

REACTIONS (1)
  - Embolism [Unknown]

NARRATIVE: CASE EVENT DATE: 20230104
